FAERS Safety Report 10060478 (Version 1)
Quarter: 2014Q2

REPORT INFORMATION
  Report Type: Spontaneous
  Country: GB (occurrence: GB)
  Receive Date: 20140404
  Receipt Date: 20140404
  Transmission Date: 20141212
  Serious: Yes (Other)
  Sender: FDA-Public Use
  Company Number: GB-ASTRAZENECA-2014SE21461

PATIENT
  Age: 47 Year
  Sex: Female

DRUGS (7)
  1. MEROPENEM [Suspect]
     Route: 042
     Dates: start: 20140317, end: 20140319
  2. CARBOCISTEINE [Concomitant]
  3. DIAZEPAM [Concomitant]
  4. MONTELUKAST [Concomitant]
  5. NEFOPAM [Concomitant]
  6. OXYBUTYNIN [Concomitant]
  7. TEMAZEPAM [Concomitant]

REACTIONS (6)
  - Hypoxia [Recovering/Resolving]
  - Local swelling [Recovering/Resolving]
  - Dyspnoea [Recovering/Resolving]
  - Wheezing [Recovering/Resolving]
  - Pruritus [Recovering/Resolving]
  - Urticaria [Recovering/Resolving]
